FAERS Safety Report 20711363 (Version 1)
Quarter: 2022Q2

REPORT INFORMATION
  Report Type: Report from Study
  Country: US (occurrence: US)
  Receive Date: 20220414
  Receipt Date: 20220414
  Transmission Date: 20220720
  Serious: Yes (Other)
  Sender: FDA-Public Use
  Company Number: US-GILEAD-2022-0577237

PATIENT
  Sex: Female

DRUGS (1)
  1. SACITUZUMAB GOVITECAN [Suspect]
     Active Substance: SACITUZUMAB GOVITECAN
     Indication: Breast cancer female
     Dosage: 540 MG OVER 1 HOUR ON DAYS 1 AND 8 EVERY 21 DAYS
     Route: 042
     Dates: start: 20220302

REACTIONS (1)
  - Radiotherapy [Unknown]
